FAERS Safety Report 13825755 (Version 2)
Quarter: 2017Q4

REPORT INFORMATION
  Report Type: Report from Study
  Country: US (occurrence: US)
  Receive Date: 20170802
  Receipt Date: 20171124
  Transmission Date: 20180320
  Serious: Yes (Death, Hospitalization, Other)
  Sender: FDA-Public Use
  Company Number: US-ACTELION-A-NJ2017-157390

PATIENT
  Age: 25 Year
  Sex: Female

DRUGS (1)
  1. OPSUMIT [Suspect]
     Active Substance: MACITENTAN
     Indication: PULMONARY HYPERTENSION
     Dosage: 10 MG, UNK
     Route: 048

REACTIONS (10)
  - Cardiac procedure complication [Unknown]
  - Treatment noncompliance [Unknown]
  - Hypoxia [Unknown]
  - Cardiac operation [Unknown]
  - Respiratory failure [Unknown]
  - Asthma [Fatal]
  - Cardiogenic shock [Fatal]
  - Haemoptysis [Fatal]
  - Right ventricular failure [Fatal]
  - Ventricular fibrillation [Unknown]
